FAERS Safety Report 7306244-3 (Version None)
Quarter: 2011Q1

REPORT INFORMATION
  Report Type: 
  Country: None (occurrence: None)
  Receive Date: 20110222
  Receipt Date: 20110208
  Transmission Date: 20110831
  Serious: Yes (Other)
  Sender: FDA-Public Use
  Company Number: JP-CELGENEUS-087-21880-10122818

PATIENT
  Sex: Female

DRUGS (8)
  1. GABAPEN [Concomitant]
     Route: 048
     Dates: start: 20100915
  2. GOSHA-JINKI-GAN [Concomitant]
     Indication: PROPHYLAXIS
     Route: 048
     Dates: start: 20100915
  3. VITAMEDIN [Concomitant]
     Indication: PROPHYLAXIS
     Route: 048
     Dates: start: 20100915
  4. LENADEX [Suspect]
     Indication: MULTIPLE MYELOMA
     Route: 048
     Dates: start: 20100916, end: 20101007
  5. JUVELA [Concomitant]
     Indication: PROPHYLAXIS
     Route: 048
     Dates: start: 20100915
  6. REVLIMID [Suspect]
     Indication: MULTIPLE MYELOMA
     Route: 048
     Dates: start: 20100916, end: 20101006
  7. GASTER D [Concomitant]
     Indication: PROPHYLAXIS
     Route: 048
     Dates: start: 20100915
  8. BARACLUDE [Concomitant]
     Route: 048
     Dates: start: 20100915

REACTIONS (3)
  - PLATELET COUNT DECREASED [None]
  - RENAL FAILURE ACUTE [None]
  - HAEMOGLOBIN DECREASED [None]
